FAERS Safety Report 6462088-6 (Version None)
Quarter: 2009Q4

REPORT INFORMATION
  Report Type: 
  Country: None (occurrence: None)
  Receive Date: 20091024
  Receipt Date: 20091118
  Transmission Date: 20100525
  Serious: Yes (Hospitalization)
  Sender: FDA-Public Use
  Company Number: 2009SP033294

PATIENT
  Age: 67 Year
  Sex: 0
  Weight: 109.7 kg

DRUGS (2)
  1. TEMODAR [Suspect]
     Indication: ACUTE MYELOID LEUKAEMIA
     Dosage: 100 MG/M2;QD;PO; 200 MG/M2/QD/PO
     Route: 048
     Dates: start: 20091021, end: 20091103
  2. TEMODAR [Suspect]
     Indication: ACUTE MYELOID LEUKAEMIA
     Dosage: 100 MG/M2;QD;PO; 200 MG/M2/QD/PO
     Route: 048
     Dates: start: 20091104, end: 20091110

REACTIONS (7)
  - ESCHAR [None]
  - FEBRILE NEUTROPENIA [None]
  - HAEMATOCRIT DECREASED [None]
  - HAEMOGLOBIN DECREASED [None]
  - MOUTH ULCERATION [None]
  - PLATELET COUNT DECREASED [None]
  - WHITE BLOOD CELL COUNT DECREASED [None]
